FAERS Safety Report 5567081-3 (Version None)
Quarter: 2007Q4

REPORT INFORMATION
  Report Type: 
  Country: None (occurrence: None)
  Receive Date: 20071219
  Receipt Date: 20071217
  Transmission Date: 20080405
  Serious: Yes (Other)
  Sender: FDA-Public Use
  Company Number: US-ASTRAZENECA-2007UW28550

PATIENT
  Age: 78 Year
  Sex: Female
  Weight: 59.9 kg

DRUGS (4)
  1. NEXIUM [Suspect]
     Indication: THROAT IRRITATION
     Route: 048
     Dates: start: 20071201
  2. SYNTHROID [Concomitant]
  3. COZAAR [Concomitant]
  4. DIABETES MEDICATION [Concomitant]

REACTIONS (3)
  - ABDOMINAL DISTENSION [None]
  - DIARRHOEA [None]
  - DIVERTICULITIS [None]
